FAERS Safety Report 20940163 (Version 1)
Quarter: 2022Q2

REPORT INFORMATION
  Report Type: Spontaneous
  Country: US (occurrence: None)
  Receive Date: 20220609
  Receipt Date: 20220609
  Transmission Date: 20220721
  Serious: Yes (Other)
  Sender: FDA-Public Use
  Company Number: None

PATIENT
  Age: 64 Year
  Sex: Female

DRUGS (2)
  1. SIRTURO [Suspect]
     Active Substance: BEDAQUILINE FUMARATE
     Indication: Tuberculosis
     Dosage: FREQUENCY : TWICE A WEEK;?
     Route: 048
     Dates: start: 20200117, end: 20210303
  2. CLOFAZIMINE [Suspect]
     Active Substance: CLOFAZIMINE

REACTIONS (1)
  - Cardiomegaly [None]

NARRATIVE: CASE EVENT DATE: 20210329
